FAERS Safety Report 23677146 (Version 1)
Quarter: 2024Q1

REPORT INFORMATION
  Report Type: Spontaneous
  Country: US (occurrence: US)
  Receive Date: 20240327
  Receipt Date: 20240327
  Transmission Date: 20240410
  Serious: No
  Sender: FDA-Public Use
  Company Number: US-BAXTER-2024BAX015693

PATIENT

DRUGS (2)
  1. INSULIN NOS [Suspect]
     Active Substance: INSULIN NOS
     Indication: Hyperglycaemia
     Dosage: INITIALLY BASAL/BOLUS DOSES AND LATER TITRATED AS PER GLUCOSE LEVELS
     Route: 065
  2. DEXTROSE\WATER [Suspect]
     Active Substance: DEXTROSE\WATER
     Dosage: 50 ML/HR AT UNSPECIFIED FREQUENCY
     Route: 065

REACTIONS (2)
  - Blood glucose increased [Recovering/Resolving]
  - Device infusion issue [Unknown]

NARRATIVE: CASE EVENT DATE: 20240305
